FAERS Safety Report 7642395-1 (Version None)
Quarter: 2011Q3

REPORT INFORMATION
  Report Type: 
  Country: None (occurrence: None)
  Receive Date: 20110728
  Receipt Date: 20100720
  Transmission Date: 20111222
  Serious: No
  Sender: FDA-Public Use
  Company Number: US-MYLANLABS-2010S1010853

PATIENT
  Age: 60 Year
  Sex: Female

DRUGS (3)
  1. LEVOTHYROXINE SODIUM [Suspect]
     Indication: HYPOTHYROIDISM
     Route: 048
     Dates: start: 20080101
  2. THYROID TAB [Suspect]
     Indication: HYPOTHYROIDISM
     Dates: end: 20100501
  3. LEVOTHYROXINE SODIUM [Suspect]
     Route: 048
     Dates: start: 20100501, end: 20100614

REACTIONS (6)
  - RASH [None]
  - DIZZINESS [None]
  - ACNE [None]
  - PRURITUS [None]
  - FEELING ABNORMAL [None]
  - URTICARIA [None]
